FAERS Safety Report 13096372 (Version 1)
Quarter: 2017Q1

REPORT INFORMATION
  Report Type: Spontaneous
  Country: US (occurrence: US)
  Receive Date: 20170106
  Receipt Date: 20170106
  Transmission Date: 20170428
  Serious: Yes (Hospitalization)
  Sender: FDA-Public Use
  Company Number: None

PATIENT
  Age: 5 Year
  Sex: Male
  Weight: 24 kg

DRUGS (6)
  1. G-CSF (FILGRASTIM, AMGEN) [Suspect]
     Active Substance: FILGRASTIM
     Dates: end: 20110418
  2. VINCRISTINE SULFATE. [Suspect]
     Active Substance: VINCRISTINE SULFATE
     Dates: end: 20111130
  3. CYCLOPHOSPHAMIDE. [Suspect]
     Active Substance: CYCLOPHOSPHAMIDE
     Dates: end: 20111130
  4. DACTINOMYCIN [Suspect]
     Active Substance: DACTINOMYCIN
     Dates: end: 20111130
  5. CAMPTOSAR [Suspect]
     Active Substance: IRINOTECAN HYDROCHLORIDE
     Dates: end: 20111104
  6. MESNA. [Suspect]
     Active Substance: MESNA
     Dates: end: 20111130

REACTIONS (11)
  - Vomiting [None]
  - Hypertension [None]
  - Pyrexia [None]
  - Disseminated intravascular coagulation [None]
  - Anaemia [None]
  - Rhabdomyosarcoma [None]
  - Thrombocytopenia [None]
  - Decreased appetite [None]
  - Hydrocephalus [None]
  - Fatigue [None]
  - Gingival bleeding [None]

NARRATIVE: CASE EVENT DATE: 20140919
